FAERS Safety Report 14604089 (Version 2)
Quarter: 2018Q2

REPORT INFORMATION
  Report Type: Report from Study
  Country: RU (occurrence: RU)
  Receive Date: 20180306
  Receipt Date: 20180502
  Transmission Date: 20180711
  Serious: Yes (Other)
  Sender: FDA-Public Use
  Company Number: RU-ROCHE-2079673

PATIENT
  Age: 71 Year
  Sex: Male
  Weight: 77 kg

DRUGS (7)
  1. FELODIP [Concomitant]
     Indication: HYPERTENSION
     Route: 048
     Dates: start: 200405
  2. VEMURAFENIB. [Suspect]
     Active Substance: VEMURAFENIB
     Indication: MALIGNANT MELANOMA
     Dosage: MOST RECENT DOSE PRIOR TO EVENT ONSET ON 09/JAN/2018 (8 TABLETS)
     Route: 048
     Dates: start: 20171206
  3. ENAP (RUSSIA) [Concomitant]
     Indication: HYPERTENSION
     Route: 048
     Dates: start: 200405
  4. DERMOVATE [Concomitant]
     Active Substance: CLOBETASOL
     Indication: RASH
     Route: 058
     Dates: start: 20170105, end: 20180111
  5. PLACEBO [Suspect]
     Active Substance: UNSPECIFIED INGREDIENT
     Indication: MALIGNANT MELANOMA
     Dosage: MOST RECENT DOSE PRIOR TO EVENT ONSET ON 05/JAN/2018
     Route: 042
     Dates: start: 20180105
  6. RAUNATINE [Concomitant]
     Indication: HYPERTENSION
     Route: 048
     Dates: start: 200405
  7. COBIMETINIB. [Suspect]
     Active Substance: COBIMETINIB
     Indication: MALIGNANT MELANOMA
     Dosage: MOST RECENT DOSE PRIOR TO EVENT ONSET ON 09/JAN/2018
     Route: 048
     Dates: start: 20171206

REACTIONS (1)
  - Retinal detachment [Recovered/Resolved]

NARRATIVE: CASE EVENT DATE: 20180110
